FAERS Safety Report 6028321-X (Version None)
Quarter: 2009Q1

REPORT INFORMATION
  Report Type: 
  Country: None (occurrence: None)
  Receive Date: 20090106
  Receipt Date: 20081229
  Transmission Date: 20090719
  Serious: Yes (Other)
  Sender: FDA-Public Use
  Company Number: BR-PFIZER INC-2008095448

PATIENT
  Sex: Male

DRUGS (2)
  1. LIPITOR [Suspect]
     Indication: BLOOD CHOLESTEROL
     Route: 048
     Dates: start: 20040101
  2. ANLODIPIN [Concomitant]
     Route: 065

REACTIONS (5)
  - ABASIA [None]
  - ILL-DEFINED DISORDER [None]
  - MALAISE [None]
  - PAIN IN EXTREMITY [None]
  - TREMOR [None]
